FAERS Safety Report 25675778 (Version 1)
Quarter: 2025Q3

REPORT INFORMATION
  Report Type: Spontaneous
  Country: US (occurrence: None)
  Receive Date: 20250812
  Receipt Date: 20250812
  Transmission Date: 20251021
  Serious: Yes (Hospitalization)
  Sender: FDA-CTU
  Company Number: None

PATIENT
  Age: 82 Year
  Sex: Male
  Weight: 103 kg

DRUGS (1)
  1. DASATINIB [Suspect]
     Active Substance: DASATINIB
     Dosage: DAILY ORAL ?
     Route: 048

REACTIONS (2)
  - Pleural effusion [None]
  - Pericardial effusion [None]

NARRATIVE: CASE EVENT DATE: 20250718
